FAERS Safety Report 7238090-3 (Version None)
Quarter: 2011Q1

REPORT INFORMATION
  Report Type: 
  Country: None (occurrence: None)
  Receive Date: 20110121
  Receipt Date: 20110117
  Transmission Date: 20110831
  Serious: Yes (Hospitalization)
  Sender: FDA-Public Use
  Company Number: B0695095A

PATIENT
  Age: 47 Year
  Sex: Male

DRUGS (3)
  1. AUGMENTIN '125' [Suspect]
     Indication: INFECTION PROPHYLAXIS
     Route: 048
     Dates: start: 20100825, end: 20100830
  2. PARACETAMOL [Suspect]
     Indication: PAIN
     Dosage: 2G PER DAY
     Route: 048
     Dates: start: 20100825, end: 20100830
  3. NOLOTIL [Suspect]
     Indication: PAIN
     Route: 048
     Dates: start: 20100825, end: 20100830

REACTIONS (2)
  - HYPERBILIRUBINAEMIA [None]
  - HEPATITIS [None]
